FAERS Safety Report 9818320 (Version 1)
Quarter: 2013Q4

REPORT INFORMATION
  Report Type: Spontaneous
  Country: US (occurrence: None)
  Receive Date: 20131223
  Receipt Date: 20131223
  Transmission Date: 20140711
  Serious: No
  Sender: FDA-Public Use
  Company Number: 219654

PATIENT
  Sex: 0

DRUGS (1)
  1. PICATO GEL [Suspect]
     Indication: ACTINIC KERATOSIS
     Dosage: 1 IN 1 D, TOPICAL
     Route: 061
     Dates: start: 20121110

REACTIONS (5)
  - Application site vesicles [None]
  - Application site exfoliation [None]
  - Secretion discharge [None]
  - Application site scab [None]
  - Drug prescribing error [None]
